FAERS Safety Report 8587536-7 (Version None)
Quarter: 2012Q3

REPORT INFORMATION
  Report Type: 
  Country: None (occurrence: None)
  Receive Date: 20120810
  Receipt Date: 20120424
  Transmission Date: 20120928
  Serious: Yes (Other)
  Sender: FDA-Public Use
  Company Number: ES-BMSGILMSD-2012-0054135

PATIENT
  Age: 29 Year
  Sex: Male

DRUGS (1)
  1. ATRIPLA [Suspect]
     Indication: HIV INFECTION
     Dosage: UNK
     Dates: start: 20110301

REACTIONS (3)
  - TRANSAMINASES INCREASED [None]
  - RASH [None]
  - LIVER DISORDER [None]
